FAERS Safety Report 16642687 (Version 2)
Quarter: 2019Q3

REPORT INFORMATION
  Report Type: Spontaneous
  Country: US (occurrence: US)
  Receive Date: 20190729
  Receipt Date: 20190822
  Transmission Date: 20191004
  Serious: Yes (Other)
  Sender: FDA-Public Use
  Company Number: US-BAYER-2019-136623

PATIENT
  Age: 44 Year
  Sex: Female

DRUGS (1)
  1. BETASERON [Suspect]
     Active Substance: INTERFERON BETA-1B
     Indication: MULTIPLE SCLEROSIS
     Dosage: 0.25 MG
     Route: 058
     Dates: start: 2001, end: 201906

REACTIONS (4)
  - Multiple sclerosis [None]
  - Thrombosis [None]
  - Influenza like illness [None]
  - Injection site reaction [None]

NARRATIVE: CASE EVENT DATE: 201906
